FAERS Safety Report 22536290 (Version 1)
Quarter: 2023Q2

REPORT INFORMATION
  Report Type: Report from Study
  Country: US (occurrence: US)
  Receive Date: 20230608
  Receipt Date: 20230608
  Transmission Date: 20230721
  Serious: Yes (Hospitalization, Other)
  Sender: FDA-Public Use
  Company Number: US-SA-SAC20230206001049

PATIENT
  Age: 59 Year
  Sex: Female

DRUGS (12)
  1. BELUMOSUDIL MESYLATE [Suspect]
     Active Substance: BELUMOSUDIL MESYLATE
     Indication: Graft versus host disease
     Dosage: 200 MG, BID
     Route: 048
     Dates: start: 202101
  2. BELUMOSUDIL MESYLATE [Suspect]
     Active Substance: BELUMOSUDIL MESYLATE
     Dosage: 200 MG, BID
     Route: 048
     Dates: start: 20221222
  3. AMLODIPINE [Concomitant]
     Active Substance: AMLODIPINE BESYLATE
  4. NOXAFIL [Concomitant]
     Active Substance: POSACONAZOLE
  5. PANTOPRAZOLE [Concomitant]
     Active Substance: PANTOPRAZOLE
  6. TACROLIMUS [Concomitant]
     Active Substance: TACROLIMUS
  7. VALTREX [Concomitant]
     Active Substance: VALACYCLOVIR HYDROCHLORIDE
  8. VITAMIN D NOS [Concomitant]
     Active Substance: VITAMIN D NOS
  9. VITAMIN D NOS [Concomitant]
     Active Substance: VITAMIN D NOS
  10. AMOXICILLIN [Concomitant]
     Active Substance: AMOXICILLIN
  11. MOXIFLOXACIN;TRIAMCINOLONE;VANCOMYCIN [Concomitant]
  12. VIT D [VITAMIN D NOS] [Concomitant]

REACTIONS (10)
  - Eye infection bacterial [Unknown]
  - Sarcoidosis [Unknown]
  - Condition aggravated [Unknown]
  - Blister [Unknown]
  - Blood cholesterol increased [Unknown]
  - White blood cell count increased [Unknown]
  - Fatigue [Recovering/Resolving]
  - Hepatic enzyme increased [Recovering/Resolving]
  - Nausea [Unknown]
  - Condition aggravated [Unknown]
